FAERS Safety Report 14609346 (Version 1)
Quarter: 2018Q1

REPORT INFORMATION
  Report Type: Spontaneous
  Country: US (occurrence: US)
  Receive Date: 20180307
  Receipt Date: 20180307
  Transmission Date: 20180509
  Serious: Yes (Hospitalization)
  Sender: FDA-Public Use
  Company Number: US-ASTRAZENECA-2018SE26914

PATIENT
  Age: 905 Month
  Sex: Female
  Weight: 74.8 kg

DRUGS (12)
  1. CRESTOR [Suspect]
     Active Substance: ROSUVASTATIN CALCIUM
     Indication: CORONARY ARTERY OCCLUSION
     Route: 048
     Dates: start: 2016, end: 2017
  2. CRESTOR [Suspect]
     Active Substance: ROSUVASTATIN CALCIUM
     Indication: BLOOD CHOLESTEROL INCREASED
     Route: 048
     Dates: start: 20171121
  3. CRESTOR [Suspect]
     Active Substance: ROSUVASTATIN CALCIUM
     Indication: CORONARY ARTERY OCCLUSION
     Route: 048
     Dates: start: 20171121
  4. CRESTOR [Suspect]
     Active Substance: ROSUVASTATIN CALCIUM
     Indication: CORONARY ARTERY OCCLUSION
     Dosage: ROSUVASTATIN CALCIUM 20 MG
     Route: 048
     Dates: start: 201704, end: 201710
  5. CRESTOR [Suspect]
     Active Substance: ROSUVASTATIN CALCIUM
     Indication: CORONARY ARTERY OCCLUSION
     Route: 048
     Dates: start: 20150501, end: 20170105
  6. CRESTOR [Suspect]
     Active Substance: ROSUVASTATIN CALCIUM
     Indication: CORONARY ARTERY OCCLUSION
     Dosage: ROSUVASTATIN CALCIUM UNKNWON
     Route: 048
     Dates: start: 20170105
  7. CRESTOR [Suspect]
     Active Substance: ROSUVASTATIN CALCIUM
     Indication: BLOOD CHOLESTEROL INCREASED
     Route: 048
     Dates: start: 2016, end: 2017
  8. TRAMADOL. [Concomitant]
     Active Substance: TRAMADOL
     Dosage: 50.0MG UNKNOWN
     Route: 065
  9. BONIVA [Concomitant]
     Active Substance: IBANDRONATE SODIUM
  10. CRESTOR [Suspect]
     Active Substance: ROSUVASTATIN CALCIUM
     Indication: BLOOD CHOLESTEROL INCREASED
     Route: 048
     Dates: start: 20150501, end: 20170105
  11. CRESTOR [Suspect]
     Active Substance: ROSUVASTATIN CALCIUM
     Indication: BLOOD CHOLESTEROL INCREASED
     Dosage: ROSUVASTATIN CALCIUM UNKNWON
     Route: 048
     Dates: start: 20170105
  12. CRESTOR [Suspect]
     Active Substance: ROSUVASTATIN CALCIUM
     Indication: BLOOD CHOLESTEROL INCREASED
     Dosage: ROSUVASTATIN CALCIUM 20 MG
     Route: 048
     Dates: start: 201704, end: 201710

REACTIONS (10)
  - Coronary artery occlusion [Unknown]
  - Low density lipoprotein increased [Unknown]
  - Off label use [Unknown]
  - Adverse event [Unknown]
  - Product use in unapproved indication [Unknown]
  - Chest pain [Unknown]
  - Angina pectoris [Unknown]
  - Chest discomfort [Unknown]
  - Drug ineffective for unapproved indication [Unknown]
  - Dyspepsia [Unknown]

NARRATIVE: CASE EVENT DATE: 201711
